FAERS Safety Report 9457979 (Version 1)
Quarter: 2013Q3

REPORT INFORMATION
  Report Type: Spontaneous
  Country: US (occurrence: US)
  Receive Date: 20130814
  Receipt Date: 20130814
  Transmission Date: 20140515
  Serious: No
  Sender: FDA-Public Use
  Company Number: US-MYLANLABS-2013S1012226

PATIENT
  Sex: Male
  Weight: 90.72 kg

DRUGS (16)
  1. TRIFLUOPERAZINE HYDROCHLORIDE TABLETS, USP [Suspect]
     Indication: DEPRESSION
     Route: 048
     Dates: start: 2001, end: 2002
  2. TRIFLUOPERAZINE HYDROCHLORIDE TABLETS, USP [Suspect]
     Indication: ANXIETY
     Route: 048
     Dates: start: 2001, end: 2002
  3. TRIFLUOPERAZINE HYDROCHLORIDE TABLETS, USP [Suspect]
     Indication: SCHIZOPHRENIA
     Route: 048
     Dates: start: 2001, end: 2002
  4. TRIFLUOPERAZINE HYDROCHLORIDE TABLETS, USP [Suspect]
     Indication: DEPRESSION
     Route: 048
     Dates: start: 201212
  5. TRIFLUOPERAZINE HYDROCHLORIDE TABLETS, USP [Suspect]
     Indication: ANXIETY
     Route: 048
     Dates: start: 201212
  6. TRIFLUOPERAZINE HYDROCHLORIDE TABLETS, USP [Suspect]
     Indication: SCHIZOPHRENIA
     Route: 048
     Dates: start: 201212
  7. TRIFLUOPERAZINE HYDROCHLORIDE TABLETS, USP [Suspect]
     Indication: DEPRESSION
     Route: 048
     Dates: start: 201212
  8. TRIFLUOPERAZINE HYDROCHLORIDE TABLETS, USP [Suspect]
     Indication: ANXIETY
     Route: 048
     Dates: start: 201212
  9. TRIFLUOPERAZINE HYDROCHLORIDE TABLETS, USP [Suspect]
     Indication: SCHIZOPHRENIA
     Route: 048
     Dates: start: 201212
  10. TRIFLUOPERAZINE HYDROCHLORIDE TABLETS, USP [Suspect]
     Indication: DEPRESSION
     Dosage: TAKING ONE TIME EVERY 2 MONTHS
     Route: 048
     Dates: start: 201212
  11. TRIFLUOPERAZINE HYDROCHLORIDE TABLETS, USP [Suspect]
     Indication: ANXIETY
     Dosage: TAKING ONE TIME EVERY 2 MONTHS
     Route: 048
     Dates: start: 201212
  12. TRIFLUOPERAZINE HYDROCHLORIDE TABLETS, USP [Suspect]
     Indication: SCHIZOPHRENIA
     Dosage: TAKING ONE TIME EVERY 2 MONTHS
     Route: 048
     Dates: start: 201212
  13. PROZAC [Concomitant]
     Indication: DEPRESSION
     Route: 048
     Dates: start: 1988
  14. KLONOPIN [Concomitant]
     Route: 048
     Dates: start: 1994, end: 2007
  15. DEPAKOTE [Concomitant]
  16. COGENTIN [Concomitant]

REACTIONS (7)
  - Nystagmus [Recovering/Resolving]
  - Visual impairment [Recovering/Resolving]
  - Oscillopsia [Recovering/Resolving]
  - Fatigue [Recovering/Resolving]
  - Increased appetite [Recovering/Resolving]
  - Weight increased [Recovering/Resolving]
  - Somnolence [Recovering/Resolving]
